FAERS Safety Report 19268828 (Version 3)
Quarter: 2021Q3

REPORT INFORMATION
  Report Type: Report from Study
  Country: FR (occurrence: FR)
  Receive Date: 20210518
  Receipt Date: 20210907
  Transmission Date: 20211014
  Serious: Yes (Life-Threatening)
  Sender: FDA-Public Use
  Company Number: FR-ROCHE-2829789

PATIENT
  Age: 72 Year
  Sex: Male
  Weight: 60 kg

DRUGS (5)
  1. KARDEGIC [Concomitant]
     Active Substance: ASPIRIN DL-LYSINE
  2. BCG [Suspect]
     Active Substance: BCG VACCINE
     Indication: BLADDER CANCER
     Route: 065
     Dates: start: 20200305, end: 20200415
  3. ATEZOLIZUMAB. [Suspect]
     Active Substance: ATEZOLIZUMAB
     Indication: BLADDER CANCER
     Dosage: (21 [PLUS?MINUS 2] DAYS) FOR 1 YEAR (18 CYCLES AS A MAXIMUM)?DATE OF LAST ADMINISTRATION WAS ON 15/A
     Route: 041
     Dates: start: 20200305, end: 20201001
  4. ATORVASTATIN [Concomitant]
     Active Substance: ATORVASTATIN
  5. INEXIUM [Concomitant]
     Active Substance: ESOMEPRAZOLE

REACTIONS (1)
  - Hepatic cytolysis [Recovering/Resolving]

NARRATIVE: CASE EVENT DATE: 20210215
